FAERS Safety Report 15650884 (Version 3)
Quarter: 2022Q4

REPORT INFORMATION
  Report Type: Other
  Country: US (occurrence: None)
  Receive Date: 20181123
  Receipt Date: 20221220
  Transmission Date: 20230112
  Serious: Yes (Hospitalization)
  Sender: FDA-Public Use
  Company Number: US-ROCHE-2219125

PATIENT
  Age: 66 Year
  Sex: Male
  Weight: 99.880 kg

DRUGS (14)
  1. OCREVUS [Suspect]
     Active Substance: OCRELIZUMAB
     Indication: Primary progressive multiple sclerosis
     Dosage: THEN 600 MG EVERY SIX MONTHS.
     Route: 042
     Dates: start: 20181031
  2. OCREVUS [Suspect]
     Active Substance: OCRELIZUMAB
     Route: 042
     Dates: start: 20181115
  3. LIPITOR [Concomitant]
     Active Substance: ATORVASTATIN CALCIUM
     Dosage: ONGOING: YES
  4. NORVASC [Concomitant]
     Active Substance: AMLODIPINE BESYLATE
     Indication: Blood pressure measurement
     Dosage: ONGOING: YES
  5. SANCTURA [Concomitant]
     Active Substance: TROSPIUM CHLORIDE
  6. FLOMAX [Concomitant]
     Active Substance: TAMSULOSIN HYDROCHLORIDE
  7. NAPROSYN [Concomitant]
     Active Substance: NAPROXEN
  8. BACLOFEN [Concomitant]
     Active Substance: BACLOFEN
  9. FLEXERIL [Concomitant]
     Active Substance: CYCLOBENZAPRINE HYDROCHLORIDE
  10. MYRBETRIQ [Concomitant]
     Active Substance: MIRABEGRON
  11. DDAVP [Concomitant]
     Active Substance: DESMOPRESSIN ACETATE
  12. VALIUM [Concomitant]
     Active Substance: DIAZEPAM
  13. LISINOPRIL [Concomitant]
     Active Substance: LISINOPRIL
  14. ZETIA [Concomitant]
     Active Substance: EZETIMIBE

REACTIONS (7)
  - Nasopharyngitis [Recovered/Resolved]
  - Pneumonia [Recovered/Resolved]
  - Influenza [Recovered/Resolved]
  - Urinary tract infection [Recovered/Resolved]
  - Asthenia [Not Recovered/Not Resolved]
  - Feeling abnormal [Not Recovered/Not Resolved]
  - Off label use [Unknown]

NARRATIVE: CASE EVENT DATE: 20220101
